FAERS Safety Report 5086136-3 (Version None)
Quarter: 2006Q3

REPORT INFORMATION
  Report Type: 
  Country: None (occurrence: None)
  Receive Date: 20060818
  Receipt Date: 20060805
  Transmission Date: 20061208
  Serious: Yes (Hospitalization, Other)
  Sender: FDA-Public Use
  Company Number: 2006089882

PATIENT
  Age: 49 Year
  Sex: Female
  Weight: 52 kg

DRUGS (9)
  1. SILDENAFIL [Suspect]
     Indication: PULMONARY HYPERTENSION
     Dosage: 75 MG (25 MG, 3 IN 1 D), ORAL
     Route: 048
     Dates: start: 20040410
  2. OXYGEN (OXYGEN) [Concomitant]
  3. BERAPROST (BERAPROST) [Concomitant]
  4. ALDACTONE [Concomitant]
  5. DIART (AZOSEMIDE) [Concomitant]
  6. TAGAMET [Concomitant]
  7. PHENYTOIN [Concomitant]
  8. DEPAKENE [Concomitant]
  9. SELBEX (TEPRENONE) [Concomitant]

REACTIONS (2)
  - BLOOD PRESSURE DECREASED [None]
  - HYPERTHYROIDISM [None]
